FAERS Safety Report 8807804 (Version 1)
Quarter: 2012Q4

REPORT INFORMATION
  Report Type: Report from Study
  Country: US (occurrence: US)
  Receive Date: 20120925
  Receipt Date: 20120925
  Transmission Date: 20130627
  Serious: Yes (Other)
  Sender: FDA-Public Use
  Company Number: US-ROCHE-1129126

PATIENT
  Age: 55 Year
  Sex: Male
  Weight: 131 kg

DRUGS (2)
  1. PEGASYS [Suspect]
     Indication: HEPATITIS C
     Dosage: last dose of prior SAE: 27/Aug/2012
     Route: 065
     Dates: start: 20120827, end: 20120828
  2. COPEGUS [Suspect]
     Indication: HEPATITIS C
     Dosage: last dose of prior SAE: 27/Aug/2012
     Route: 065
     Dates: start: 20120827, end: 20120828

REACTIONS (2)
  - Dyspnoea [Recovered/Resolved]
  - Pain in extremity [Unknown]
